FAERS Safety Report 5437900-X (Version None)
Quarter: 2007Q3

REPORT INFORMATION
  Report Type: 
  Country: None (occurrence: None)
  Receive Date: 20070831
  Receipt Date: 20070628
  Transmission Date: 20080115
  Serious: No
  Sender: FDA-Public Use
  Company Number: A0660453A

PATIENT
  Age: 34 Year
  Sex: Female

DRUGS (1)
  1. ALLI [Suspect]
     Dates: start: 20070624

REACTIONS (4)
  - DIARRHOEA [None]
  - DIZZINESS [None]
  - HYPERHIDROSIS [None]
  - NAUSEA [None]
